FAERS Safety Report 4989053-X (Version None)
Quarter: 2006Q1

REPORT INFORMATION
  Report Type: 
  Country: None (occurrence: None)
  Receive Date: 20060314
  Receipt Date: 20051111
  Transmission Date: 20060701
  Serious: Yes (Other)
  Sender: FDA-Public Use
  Company Number: 200514414BCC

PATIENT
  Age: 64 Year
  Sex: Female
  Weight: 86.1834 kg

DRUGS (2)
  1. ALEVE (CAPLET) [Suspect]
     Dosage: 440 MG, TOTAL DAILY, ORAL
     Route: 048
     Dates: start: 20051101
  2. LEVAQUIN [Concomitant]

REACTIONS (4)
  - ERYTHEMA [None]
  - EYE IRRITATION [None]
  - SWELLING FACE [None]
  - THROAT IRRITATION [None]
